FAERS Safety Report 24631187 (Version 1)
Quarter: 2024Q4

REPORT INFORMATION
  Report Type: Spontaneous
  Country: US (occurrence: None)
  Receive Date: 20241117
  Receipt Date: 20241117
  Transmission Date: 20250114
  Serious: Yes (Other)
  Sender: Public
  Company Number: None

PATIENT
  Age: 64 Year
  Sex: Male
  Weight: 57.5 kg

DRUGS (1)
  1. PANZYGA [Suspect]
     Active Substance: HUMAN IMMUNOGLOBULIN G
     Indication: Lung transplant rejection
     Dosage: 30 G GRAM(S) Q4W INTRAVENOUS DRIP?
     Route: 041

REACTIONS (3)
  - Infusion related reaction [None]
  - Urticaria [None]
  - Urticaria [None]

NARRATIVE: CASE EVENT DATE: 20241011
